FAERS Safety Report 5363223-3 (Version None)
Quarter: 2007Q2

REPORT INFORMATION
  Report Type: 
  Country: None (occurrence: None)
  Receive Date: 20070618
  Receipt Date: 20070618
  Transmission Date: 20071010
  Serious: Yes (Hospitalization)
  Sender: FDA-Public Use
  Company Number: None

PATIENT
  Age: 48 Year
  Sex: Male
  Weight: 60.782 kg

DRUGS (4)
  1. VIT B12 [Suspect]
     Dosage: IM - Q 9 WKS.
     Dates: start: 20070410
  2. FOLIC ACID [Suspect]
     Dosage: DAILY PO
     Route: 048
     Dates: start: 20070410
  3. ALIMTA [Concomitant]
  4. ERBITUX [Concomitant]

REACTIONS (4)
  - CATHETER BACTERAEMIA [None]
  - DIARRHOEA [None]
  - PAIN OF SKIN [None]
  - SKIN DISORDER [None]
